FAERS Safety Report 5265392-2 (Version None)
Quarter: 2007Q1

REPORT INFORMATION
  Report Type: 
  Country: None (occurrence: None)
  Receive Date: 20070314
  Receipt Date: 20070306
  Transmission Date: 20070707
  Serious: Yes (Other)
  Sender: FDA-Public Use
  Company Number: US-PFIZER INC-2007017733

PATIENT
  Sex: Female

DRUGS (1)
  1. GEODON [Suspect]

REACTIONS (7)
  - HEART RATE DECREASED [None]
  - INCORRECT ROUTE OF DRUG ADMINISTRATION [None]
  - NAUSEA [None]
  - RESPIRATORY RATE DECREASED [None]
  - SOMNOLENCE [None]
  - SURGERY [None]
  - UNRESPONSIVE TO STIMULI [None]
